FAERS Safety Report 7738761-6 (Version None)
Quarter: 2011Q3

REPORT INFORMATION
  Report Type: 
  Country: None (occurrence: None)
  Receive Date: 20110908
  Receipt Date: 20110826
  Transmission Date: 20111222
  Serious: Yes (Hospitalization, Other)
  Sender: FDA-Public Use
  Company Number: US-RB-031907-11

PATIENT
  Age: 57 Year
  Sex: Female

DRUGS (1)
  1. SUBOXONE [Suspect]
     Indication: PRODUCT USED FOR UNKNOWN INDICATION
     Dosage: SUBLINGUAL FILM / UNKNOWN DOSING INFORMATION
     Route: 065
     Dates: start: 20110801

REACTIONS (5)
  - MUSCLE RIGIDITY [None]
  - OFF LABEL USE [None]
  - CONVULSION [None]
  - BLOOD GLUCOSE DECREASED [None]
  - FEELING JITTERY [None]
